FAERS Safety Report 25111349 (Version 1)
Quarter: 2025Q1

REPORT INFORMATION
  Report Type: Spontaneous
  Country: JP (occurrence: JP)
  Receive Date: 20250324
  Receipt Date: 20250324
  Transmission Date: 20250409
  Serious: Yes (Other)
  Sender: VERICEL
  Company Number: JP-VERICEL-JP-VCEL-25-000072

PATIENT
  Age: 74 Year
  Sex: Male

DRUGS (2)
  1. BROMELAINS [Suspect]
     Active Substance: BROMELAINS
     Indication: Burns third degree
     Route: 061
  2. BROMELAINS [Suspect]
     Active Substance: BROMELAINS
     Indication: Burns second degree

REACTIONS (2)
  - Haemorrhage subcutaneous [Recovered/Resolved]
  - Muscle necrosis [Recovered/Resolved]
